FAERS Safety Report 7089409-8 (Version None)
Quarter: 2010Q4

REPORT INFORMATION
  Report Type: 
  Country: None (occurrence: None)
  Receive Date: 20101108
  Receipt Date: 20101101
  Transmission Date: 20110411
  Serious: Yes (Hospitalization, Other)
  Sender: FDA-Public Use
  Company Number: US-ELI_LILLY_AND_COMPANY-US201011000209

PATIENT
  Age: 39 Year
  Sex: Male

DRUGS (7)
  1. LISPRO REGLISPRO [Suspect]
     Dosage: 25 U, 3/D
     Route: 065
  2. LISPRO REGLISPRO [Suspect]
     Dosage: 800 U, UNK
  3. INSULIN GLARGINE [Concomitant]
     Dosage: 50 U, 2/D
     Route: 065
  4. INSULIN GLARGINE [Concomitant]
     Dosage: 3800 U, UNK
  5. CETIRIZINE HCL [Concomitant]
     Dosage: 10 MG, DAILY (1/D)
     Route: 065
  6. OMEPRAZOLE [Concomitant]
     Dosage: 40 MG, DAILY (1/D)
     Route: 065
  7. ALBUTEROL [Concomitant]
     Dosage: 3 ML, EVERY 8 HRS
     Route: 065

REACTIONS (2)
  - INTENTIONAL OVERDOSE [None]
  - SUICIDE ATTEMPT [None]
